FAERS Safety Report 7608595-1 (Version None)
Quarter: 2011Q3

REPORT INFORMATION
  Report Type: 
  Country: None (occurrence: None)
  Receive Date: 20110714
  Receipt Date: 20110706
  Transmission Date: 20111222
  Serious: Yes (Other)
  Sender: FDA-Public Use
  Company Number: PHHY2010AU56064

PATIENT
  Sex: Female
  Weight: 78 kg

DRUGS (3)
  1. ZOLEDRONOC ACID [Suspect]
     Dosage: 5 MG/100 ML
     Route: 042
     Dates: start: 20100816, end: 20100818
  2. NORMENON [Concomitant]
     Dosage: 10 MG
     Route: 048
  3. MICARDIS [Concomitant]
     Dosage: 80 MG
     Dates: start: 20080101, end: 20110101

REACTIONS (7)
  - INSOMNIA [None]
  - DECREASED APPETITE [None]
  - NAUSEA [None]
  - VOMITING [None]
  - MOUTH ULCERATION [None]
  - PYREXIA [None]
  - INFLUENZA LIKE ILLNESS [None]
